FAERS Safety Report 5101525-6 (Version None)
Quarter: 2006Q3

REPORT INFORMATION
  Report Type: 
  Country: None (occurrence: None)
  Receive Date: 20060911
  Receipt Date: 20060901
  Transmission Date: 20061208
  Serious: Yes (Other)
  Sender: FDA-Public Use
  Company Number: NO-JNJFOC-20060900495

PATIENT
  Age: 34 Year
  Sex: Female

DRUGS (1)
  1. ORTHO EVRA [Suspect]
     Indication: WEIGHT INCREASED
     Dosage: 2.5-3 YEARS
     Route: 062

REACTIONS (2)
  - CERVIX DISORDER [None]
  - OFF LABEL USE [None]
